FAERS Safety Report 9901265 (Version 2)
Quarter: 2014Q2

REPORT INFORMATION
  Report Type: Spontaneous
  Country: US (occurrence: US)
  Receive Date: 20140217
  Receipt Date: 20140502
  Transmission Date: 20141212
  Serious: Yes (Disabling, Other)
  Sender: FDA-Public Use
  Company Number: US-009507513-1402USA005145

PATIENT
  Sex: Female

DRUGS (4)
  1. FOSAMAX [Suspect]
     Indication: OSTEOPOROSIS
     Dosage: 70 MG, QW
     Route: 048
     Dates: start: 2000, end: 2002
  2. FOSAMAX [Suspect]
     Indication: OSTEOPENIA
     Dosage: 70 MG, QW
     Route: 048
     Dates: start: 200309, end: 2011
  3. FOSAMAX [Suspect]
     Dosage: 35 MG, UNK
     Route: 048
     Dates: start: 200309, end: 2011
  4. ALENDRONATE SODIUM [Suspect]

REACTIONS (9)
  - Femur fracture [Not Recovered/Not Resolved]
  - Intramedullary rod insertion [Unknown]
  - Depression [Unknown]
  - Anxiety [Unknown]
  - Fear [Unknown]
  - Impaired healing [Unknown]
  - Foot fracture [Unknown]
  - Foot fracture [Unknown]
  - Bone disorder [Unknown]
